FAERS Safety Report 4084394 (Version 1)
Quarter: 2020Q3

REPORT INFORMATION
  Report Type: Report from Study
  Country: CA (occurrence: CA)
  Receive Date: 20040209
  Receipt Date: 20040209
  Transmission Date: 20201104
  Serious: Yes (Hospitalization)
  Sender: FDA-Public Use
  Company Number: CA-ROCHE-356746

PATIENT
  Age: 68 Year
  Sex: Male
  Weight: 64.4 kg

DRUGS (12)
  1. FERROUS GLUCONATE [Concomitant]
     Active Substance: FERROUS GLUCONATE
     Route: 048
     Dates: start: 20030203
  2. COUMADIN [Suspect]
     Active Substance: WARFARIN SODIUM
     Indication: PRODUCT USED FOR UNKNOWN INDICATION
     Route: 065
     Dates: start: 20030401, end: 20031223
  3. CARDIZEM [Concomitant]
     Active Substance: DILTIAZEM HYDROCHLORIDE
     Dates: start: 20030615
  4. FOLIC ACID. [Concomitant]
     Active Substance: FOLIC ACID
     Route: 048
     Dates: start: 20030203
  5. EPREX [Concomitant]
     Active Substance: ERYTHROPOIETIN
     Dates: start: 20031015
  6. VENTOLIN [Concomitant]
     Active Substance: ALBUTEROL SULFATE
     Dates: start: 19890615
  7. OXALIPLATIN. [Suspect]
     Active Substance: OXALIPLATIN
     Route: 042
     Dates: start: 20040105, end: 20040116
  8. ATROVENT [Concomitant]
     Active Substance: IPRATROPIUM BROMIDE
     Dates: start: 19890615
  9. LOSEC [Concomitant]
     Active Substance: OMEPRAZOLE
     Dates: start: 20010925
  10. DIGOXIN. [Concomitant]
     Active Substance: DIGOXIN
     Dates: start: 20030615
  11. CAPECITABINE. [Suspect]
     Active Substance: CAPECITABINE
     Dosage: TWO WEEK TREATMENT AND ONE WEEK REST.
     Route: 048
     Dates: start: 20040105
  12. COUMADIN [Suspect]
     Active Substance: WARFARIN SODIUM
     Route: 065
     Dates: start: 20031229

REACTIONS (12)
  - Dyspnoea [None]
  - Gastrointestinal haemorrhage [None]
  - Metastatic neoplasm [None]
  - Azotaemia [None]
  - Haematemesis [Not Recovered/Not Resolved]
  - Decreased appetite [None]
  - Coagulopathy [None]
  - Abdominal pain [None]
  - Dehydration [None]
  - Fatigue [None]
  - Condition aggravated [None]
  - Metabolic acidosis [None]

NARRATIVE: CASE EVENT DATE: 20040116
